FAERS Safety Report 7394980-2 (Version None)
Quarter: 2011Q2

REPORT INFORMATION
  Report Type: 
  Country: None (occurrence: None)
  Receive Date: 20110405
  Receipt Date: 20110324
  Transmission Date: 20111010
  Serious: Yes (Hospitalization)
  Sender: FDA-Public Use
  Company Number: DE-JNJFOC-20110310190

PATIENT
  Sex: Male

DRUGS (2)
  1. REGAINE MAENNER [Suspect]
     Indication: PRODUCT USED FOR UNKNOWN INDICATION
     Route: 061
  2. REGAINE MAENNER [Suspect]
     Route: 061

REACTIONS (1)
  - ANAEMIA [None]
